FAERS Safety Report 6024027-1 (Version None)
Quarter: 2008Q4

REPORT INFORMATION
  Report Type: 
  Country: None (occurrence: None)
  Receive Date: 20081222
  Receipt Date: 20080917
  Transmission Date: 20090506
  Serious: No
  Sender: FDA-Public Use
  Company Number: SPV1-2008-02013

PATIENT

DRUGS (2)
  1. VYVANSE [Suspect]
  2. CEFACLOR [Suspect]

REACTIONS (1)
  - PSYCHOMOTOR HYPERACTIVITY [None]
